FAERS Safety Report 19667778 (Version 3)
Quarter: 2021Q4

REPORT INFORMATION
  Report Type: Other
  Country: CA (occurrence: None)
  Receive Date: 20210806
  Receipt Date: 20211220
  Transmission Date: 20220303
  Serious: Yes (Hospitalization, Other)
  Sender: FDA-Public Use
  Company Number: CA-ROCHE-2749285

PATIENT
  Age: 49 Year
  Sex: Female

DRUGS (6)
  1. OCREVUS [Suspect]
     Active Substance: OCRELIZUMAB
     Indication: Primary progressive multiple sclerosis
     Dosage: THEN 600 MG EVERY 6 MONTH
     Route: 042
     Dates: start: 20200817
  2. OCREVUS [Suspect]
     Active Substance: OCRELIZUMAB
     Dosage: 600 MG EVERY 6 MONTH
     Route: 042
  3. DALFAMPRIDINE [Concomitant]
     Active Substance: DALFAMPRIDINE
  4. DITROPAN [Concomitant]
     Active Substance: OXYBUTYNIN CHLORIDE
  5. BACLOFEN [Concomitant]
     Active Substance: BACLOFEN
  6. PROLIA [Concomitant]
     Active Substance: DENOSUMAB

REACTIONS (14)
  - Calculus bladder [Recovered/Resolved]
  - Hypotension [Recovering/Resolving]
  - Bacterial infection [Recovered/Resolved]
  - Catheter site pain [Recovered/Resolved]
  - Muscle spasms [Not Recovered/Not Resolved]
  - Fall [Unknown]
  - Arthropathy [Not Recovered/Not Resolved]
  - Ligament rupture [Unknown]
  - Insomnia [Unknown]
  - Weight increased [Not Recovered/Not Resolved]
  - Dysuria [Not Recovered/Not Resolved]
  - Urine odour abnormal [Not Recovered/Not Resolved]
  - Chromaturia [Not Recovered/Not Resolved]
  - Urinary tract infection [Unknown]

NARRATIVE: CASE EVENT DATE: 20211201
